FAERS Safety Report 10215886 (Version 2)
Quarter: 2014Q2

REPORT INFORMATION
  Report Type: Spontaneous
  Country: US (occurrence: US)
  Receive Date: 20140604
  Receipt Date: 20140613
  Transmission Date: 20141212
  Serious: Yes (Other)
  Sender: FDA-Public Use
  Company Number: US-US-EMD SERONO, INC.-7295375

PATIENT
  Sex: Female

DRUGS (2)
  1. CRINONE 8% (PROGESTERONE GEL) [Suspect]
     Indication: PREGNANCY
     Route: 067
     Dates: start: 20140519, end: 20140520
  2. ESTRACE [Suspect]
     Indication: PREGNANCY
     Dates: start: 20140304, end: 20140514

REACTIONS (1)
  - Abortion spontaneous [Unknown]
